FAERS Safety Report 7411927-0 (Version None)
Quarter: 2011Q2

REPORT INFORMATION
  Report Type: 
  Country: None (occurrence: None)
  Receive Date: 20110413
  Receipt Date: 20110404
  Transmission Date: 20111010
  Serious: Yes (Other)
  Sender: FDA-Public Use
  Company Number: JP-ASTRAZENECA-2011SE19827

PATIENT
  Age: 55 Year
  Sex: Female

DRUGS (3)
  1. LIVALO [Concomitant]
     Route: 048
     Dates: start: 20090301
  2. PLACODE [Concomitant]
     Route: 048
     Dates: start: 20110225
  3. SYMBICORT [Suspect]
     Route: 055
     Dates: start: 20110330, end: 20110331

REACTIONS (3)
  - DYSPNOEA [None]
  - URTICARIA [None]
  - ANAPHYLACTIC REACTION [None]
